FAERS Safety Report 8872540 (Version 2)
Quarter: 2012Q4

REPORT INFORMATION
  Report Type: Report from Study
  Country: CA (occurrence: CA)
  Receive Date: 20121030
  Receipt Date: 20121101
  Transmission Date: 20130627
  Serious: No
  Sender: FDA-Public Use
  Company Number: CA-ROCHE-1147009

PATIENT
  Age: 88 Year
  Sex: Female
  Weight: 57.6 kg

DRUGS (10)
  1. VEMURAFENIB [Suspect]
     Indication: METASTATIC MALIGNANT MELANOMA
     Route: 048
     Dates: start: 20120810
  2. VEMURAFENIB [Suspect]
     Route: 065
     Dates: start: 20120925, end: 20121004
  3. METOPROLOL [Concomitant]
     Indication: CARDIOVASCULAR DISORDER
     Route: 048
     Dates: start: 20120428
  4. ALENDRONATE [Concomitant]
     Route: 048
     Dates: start: 20120421
  5. CA CARBONATE [Concomitant]
     Route: 048
     Dates: start: 20120814
  6. D-TABS [Concomitant]
     Indication: HYPOKALAEMIA
     Route: 048
     Dates: start: 20120814
  7. SYNTHROID [Concomitant]
     Indication: THYROID DISORDER
     Route: 048
     Dates: start: 20120421
  8. VALSARTAN [Concomitant]
     Indication: CARDIOVASCULAR DISORDER
     Route: 048
     Dates: start: 20120624
  9. AMLODIPINE [Concomitant]
     Indication: CARDIOVASCULAR DISORDER
     Route: 048
     Dates: start: 20120624
  10. ATORVASTATIN [Concomitant]
     Indication: BLOOD CHOLESTEROL
     Route: 048
     Dates: start: 20120428

REACTIONS (8)
  - Neoplasm skin [Not Recovered/Not Resolved]
  - Skin papilloma [Unknown]
  - Fatigue [Unknown]
  - Pain [Unknown]
  - Alopecia [Not Recovered/Not Resolved]
  - Ageusia [Unknown]
  - Retching [Unknown]
  - Decreased appetite [Unknown]
